FAERS Safety Report 7421679-6 (Version None)
Quarter: 2011Q1

REPORT INFORMATION
  Report Type: 
  Country: None (occurrence: None)
  Receive Date: 20110302
  Receipt Date: 20101108
  Transmission Date: 20110831
  Serious: No
  Sender: FDA-Public Use
  Company Number: 021724

PATIENT
  Sex: Female
  Weight: 45.3 kg

DRUGS (6)
  1. CORTISONE [Concomitant]
  2. VITAMIN D [Concomitant]
  3. AGGRENOX [Concomitant]
  4. METOPROLOL SUCCINATE [Concomitant]
  5. METOPROLOL SUCCINATE [Concomitant]
  6. CIMZIA [Suspect]
     Indication: RHEUMATOID ARTHRITIS
     Dosage: TWO SHOTS EVERY TWO WEEKS SUBCUTANEOUS
     Route: 058
     Dates: start: 20101001

REACTIONS (6)
  - URINARY TRACT INFECTION [None]
  - INSOMNIA [None]
  - ORAL INFECTION [None]
  - VOMITING [None]
  - ORAL PAIN [None]
  - GALLBLADDER PAIN [None]
